FAERS Safety Report 10236247 (Version 2)
Quarter: 2014Q2

REPORT INFORMATION
  Report Type: Spontaneous
  Country: US (occurrence: US)
  Receive Date: 20140613
  Receipt Date: 20140613
  Transmission Date: 20141212
  Serious: No
  Sender: FDA-Public Use
  Company Number: US-009507513-97100783

PATIENT
  Age: 73 Year
  Sex: Female

DRUGS (7)
  1. ZOCOR [Suspect]
     Dosage: UNK MG, UNK
     Route: 048
     Dates: start: 199709, end: 1997
  2. VITAMIN E [Concomitant]
     Dosage: 400 MG, BID
     Dates: start: 199709
  3. INFLUENZA VIRUS VACCINE (UNSPECIFIED) [Concomitant]
     Indication: PROPHYLAXIS
     Dates: start: 199709, end: 199709
  4. LANOXIN [Concomitant]
  5. CLINORIL [Concomitant]
     Route: 048
  6. DYAZIDE [Concomitant]
  7. ASPIRIN [Concomitant]

REACTIONS (1)
  - Tinnitus [Not Recovered/Not Resolved]
